FAERS Safety Report 7943585-0 (Version None)
Quarter: 2011Q4

REPORT INFORMATION
  Report Type: 
  Country: None (occurrence: None)
  Receive Date: 20111128
  Receipt Date: 20111107
  Transmission Date: 20120403
  Serious: No
  Sender: FDA-Public Use
  Company Number: US-ROXANE LABORATORIES, INC.-2011-RO-01608RO

PATIENT
  Sex: Female
  Weight: 73 kg

DRUGS (6)
  1. SYNTHROID [Concomitant]
     Indication: HYPOTHYROIDISM
     Dosage: 0.125 MG
     Dates: start: 19950101
  2. FLECAINIDE ACETATE [Suspect]
     Indication: VENTRICULAR EXTRASYSTOLES
  3. FLECAINIDE ACETATE [Suspect]
     Indication: ATRIAL FIBRILLATION
     Dosage: 100 MG
     Dates: start: 20101001
  4. AMBIEN [Concomitant]
     Indication: INSOMNIA
     Dosage: 10 MG
     Dates: start: 20100101
  5. METOPROLOL TARTRATE [Concomitant]
     Indication: ATRIAL FIBRILLATION
     Dosage: 50 MG
  6. COQ10 [Concomitant]
     Indication: SUPPLEMENTATION THERAPY
     Dosage: 200 MG
     Dates: start: 20090101

REACTIONS (2)
  - PRODUCT SOLUBILITY ABNORMAL [None]
  - PRODUCT TASTE ABNORMAL [None]
